FAERS Safety Report 15329522 (Version 4)
Quarter: 2019Q4

REPORT INFORMATION
  Report Type: Report from Study
  Country: US (occurrence: US)
  Receive Date: 20180829
  Receipt Date: 20191209
  Transmission Date: 20200122
  Serious: Yes (Hospitalization, Other)
  Sender: FDA-Public Use
  Company Number: US-ABBVIE-18K-163-2376341-00

PATIENT
  Age: 60 Year
  Sex: Male
  Weight: 81.72 kg

DRUGS (13)
  1. HUMIRA [Suspect]
     Active Substance: ADALIMUMAB
     Indication: RHEUMATOID ARTHRITIS
     Route: 058
     Dates: start: 2013
  2. HUMIRA [Suspect]
     Active Substance: ADALIMUMAB
     Route: 058
  3. ASPIRIN. [Concomitant]
     Active Substance: ASPIRIN
     Indication: ANTICOAGULANT THERAPY
  4. ATORVASTATIN [Concomitant]
     Active Substance: ATORVASTATIN
     Indication: HYPERCHOLESTEROLAEMIA
  5. INSPRA [Concomitant]
     Active Substance: EPLERENONE
     Indication: HYPERTENSION
  6. LISINOPRIL. [Concomitant]
     Active Substance: LISINOPRIL
     Indication: HYPERTENSION
  7. PREDNISONE. [Concomitant]
     Active Substance: PREDNISONE
     Indication: RHEUMATOID ARTHRITIS
  8. HUMIRA [Suspect]
     Active Substance: ADALIMUMAB
     Route: 058
  9. METHOTREXATE. [Concomitant]
     Active Substance: METHOTREXATE
     Indication: RHEUMATOID ARTHRITIS
  10. CARVEDILOL. [Concomitant]
     Active Substance: CARVEDILOL
     Indication: HYPERTENSION
  11. DETROL LA [Concomitant]
     Active Substance: TOLTERODINE TARTRATE
     Indication: PRODUCT USED FOR UNKNOWN INDICATION
  12. NIFEDIPINE. [Concomitant]
     Active Substance: NIFEDIPINE
     Indication: RAYNAUD^S PHENOMENON
  13. FOLIC ACID. [Concomitant]
     Active Substance: FOLIC ACID
     Indication: VITAMIN SUPPLEMENTATION

REACTIONS (39)
  - Gait disturbance [Unknown]
  - Memory impairment [Not Recovered/Not Resolved]
  - Blister [Recovered/Resolved]
  - Fall [Recovered/Resolved]
  - Injection site haemorrhage [Not Recovered/Not Resolved]
  - Herpes zoster [Unknown]
  - Skin ulcer [Unknown]
  - Synovial fluid white blood cells positive [Unknown]
  - Sciatica [Recovering/Resolving]
  - Vertebral osteophyte [Not Recovered/Not Resolved]
  - Raynaud^s phenomenon [Unknown]
  - Back injury [Unknown]
  - Poor peripheral circulation [Unknown]
  - Musculoskeletal pain [Recovered/Resolved]
  - Myalgia [Recovering/Resolving]
  - Incorrect dose administered [Unknown]
  - Mobility decreased [Unknown]
  - Arterial disorder [Unknown]
  - Hypoaesthesia [Recovering/Resolving]
  - Joint effusion [Recovering/Resolving]
  - Visual impairment [Recovering/Resolving]
  - Joint swelling [Recovering/Resolving]
  - Intervertebral disc degeneration [Not Recovered/Not Resolved]
  - Inflammation [Recovering/Resolving]
  - Musculoskeletal pain [Not Recovered/Not Resolved]
  - Pneumonia [Unknown]
  - Diarrhoea [Unknown]
  - Device issue [Unknown]
  - Ligament sprain [Recovering/Resolving]
  - Eye oedema [Unknown]
  - Arthralgia [Recovering/Resolving]
  - Vision blurred [Recovering/Resolving]
  - Chest pain [Recovered/Resolved]
  - Angiopathy [Unknown]
  - Arthralgia [Unknown]
  - Pain in extremity [Recovering/Resolving]
  - Muscle spasms [Recovering/Resolving]
  - Retinal disorder [Not Recovered/Not Resolved]
  - Pain in extremity [Recovered/Resolved]

NARRATIVE: CASE EVENT DATE: 2016
